FAERS Safety Report 19145049 (Version 1)
Quarter: 2021Q2

REPORT INFORMATION
  Report Type: Spontaneous
  Country: US (occurrence: US)
  Receive Date: 20210416
  Receipt Date: 20210416
  Transmission Date: 20210717
  Serious: Yes (Death)
  Sender: FDA-Public Use
  Company Number: None

PATIENT
  Sex: Female

DRUGS (11)
  1. BISOPROL FUM [Concomitant]
     Active Substance: BISOPROLOL FUMARATE
  2. CETIRIZINE [Concomitant]
     Active Substance: CETIRIZINE HYDROCHLORIDE
  3. DEXAMETHASON [Concomitant]
     Active Substance: DEXAMETHASONE
  4. DOFETILIDE 250MCG CAP [Suspect]
     Active Substance: DOFETILIDE
     Indication: LUNG NEOPLASM MALIGNANT
     Route: 048
     Dates: start: 20180214
  5. GABAPENTIN. [Concomitant]
     Active Substance: GABAPENTIN
  6. CLONAZEPAM. [Concomitant]
     Active Substance: CLONAZEPAM
  7. LEVETIRACETA [Concomitant]
     Active Substance: LEVETIRACETAM
  8. OXYBUTYNIN. [Concomitant]
     Active Substance: OXYBUTYNIN CHLORIDE
  9. DULOXETINE. [Concomitant]
     Active Substance: DULOXETINE
  10. HYDROCO/APAP [Concomitant]
     Active Substance: ACETAMINOPHEN\HYDROCODONE
  11. LEVOFLOXACIN. [Concomitant]
     Active Substance: LEVOFLOXACIN

REACTIONS (1)
  - Death [None]
